FAERS Safety Report 9236104 (Version 1)
Quarter: 2013Q2

REPORT INFORMATION
  Report Type: Report from Study
  Country: MX (occurrence: MX)
  Receive Date: 20130417
  Receipt Date: 20130417
  Transmission Date: 20140414
  Serious: Yes (Other)
  Sender: FDA-Public Use
  Company Number: PHHY2013MX036635

PATIENT
  Age: 72 Year
  Sex: Female

DRUGS (5)
  1. ONBREZ [Suspect]
     Indication: BRONCHITIS CHRONIC
     Dosage: 150 UG, UNK
  2. AVALIDE [Concomitant]
     Indication: HYPERTENSION
     Dosage: 2 DF, DAILY
     Dates: start: 2003
  3. LYRICA [Concomitant]
     Dosage: 1 DF, DAILY
     Dates: start: 2008
  4. TRADOL [Concomitant]
     Indication: PAIN IN EXTREMITY
     Dosage: 2 DF, DAILY
     Dates: start: 201303
  5. PARACETAMOL [Concomitant]
     Indication: PAIN
     Dosage: 2 DF, DAILY
     Dates: start: 201303

REACTIONS (6)
  - Intervertebral disc protrusion [Unknown]
  - Spinal cord infection [Unknown]
  - Dysphonia [Not Recovered/Not Resolved]
  - Feeling abnormal [Not Recovered/Not Resolved]
  - Oropharyngeal pain [Not Recovered/Not Resolved]
  - Off label use [Unknown]
